FAERS Safety Report 14664108 (Version 1)
Quarter: 2018Q1

REPORT INFORMATION
  Report Type: Spontaneous
  Country: US (occurrence: US)
  Receive Date: 20180321
  Receipt Date: 20180321
  Transmission Date: 20180509
  Serious: Yes (Hospitalization)
  Sender: FDA-Public Use
  Company Number: US-LEXICON PHARMACEUTICALS, INC-18-1606-00286

PATIENT
  Sex: Female

DRUGS (20)
  1. MULTIVITAMIN [Concomitant]
     Active Substance: VITAMINS
  2. SANDOSTATIN LAR DEPOT [Concomitant]
     Active Substance: OCTREOTIDE ACETATE
  3. PREDNISONE. [Concomitant]
     Active Substance: PREDNISONE
  4. TENORMIN [Concomitant]
     Active Substance: ATENOLOL
  5. CHOLESTYRAMINE. [Concomitant]
     Active Substance: CHOLESTYRAMINE
  6. TELOTRISTAT ETHYL [Suspect]
     Active Substance: TELOTRISTAT ETHYL
     Indication: CARCINOID TUMOUR OF THE CAECUM
     Route: 048
     Dates: start: 20170628
  7. LIDOCAINE. [Concomitant]
     Active Substance: LIDOCAINE
  8. PEPCID [Concomitant]
     Active Substance: FAMOTIDINE
  9. CALCIUM CARBONATE PLUS VITAMIN D [Concomitant]
  10. ATORVASTATIN CALCIUM. [Concomitant]
     Active Substance: ATORVASTATIN CALCIUM
  11. FENTANYL. [Concomitant]
     Active Substance: FENTANYL
  12. FLEXERIL [Concomitant]
     Active Substance: CYCLOBENZAPRINE HYDROCHLORIDE
  13. NORCO [Concomitant]
     Active Substance: ACETAMINOPHEN\HYDROCODONE BITARTRATE
  14. POTASSIUM CHLORIDE. [Concomitant]
     Active Substance: POTASSIUM CHLORIDE
  15. REQUIP [Concomitant]
     Active Substance: ROPINIROLE HYDROCHLORIDE
  16. COUMADIN [Concomitant]
     Active Substance: WARFARIN SODIUM
  17. IRON [Concomitant]
     Active Substance: IRON
  18. NAMBUTONE [Concomitant]
  19. LASIX [Concomitant]
     Active Substance: FUROSEMIDE
  20. METHOTREXATE. [Concomitant]
     Active Substance: METHOTREXATE

REACTIONS (1)
  - Heart rate irregular [Unknown]

NARRATIVE: CASE EVENT DATE: 2018
